FAERS Safety Report 9510004 (Version 1)
Quarter: 2013Q3

REPORT INFORMATION
  Report Type: Spontaneous
  Country: US (occurrence: US)
  Receive Date: 20130909
  Receipt Date: 20130909
  Transmission Date: 20140515
  Serious: No
  Sender: FDA-Public Use
  Company Number: US-BRISTOL-MYERS SQUIBB COMPANY-18867671

PATIENT
  Age: 74 Year
  Sex: Female
  Weight: 87.53 kg

DRUGS (4)
  1. ABILIFY [Suspect]
     Indication: DEPRESSION
  2. SERTRALINE [Concomitant]
  3. NEURONTIN [Concomitant]
     Dosage: FOR A MONTH
  4. PREDNISONE [Concomitant]
     Dosage: FOR 1 MONTH

REACTIONS (3)
  - Depression [Unknown]
  - Asthenia [Unknown]
  - Somnolence [Unknown]
